FAERS Safety Report 16668653 (Version 1)
Quarter: 2019Q3

REPORT INFORMATION
  Report Type: Spontaneous
  Country: US (occurrence: US)
  Receive Date: 20190620
  Receipt Date: 20190620
  Transmission Date: 20191004
  Serious: No
  Sender: FDA-Public Use
  Company Number: None

PATIENT
  Age: 58 Year
  Sex: Male

DRUGS (2)
  1. COSENTYX [Suspect]
     Active Substance: SECUKINUMAB
     Indication: ANKYLOSING SPONDYLITIS
     Dates: start: 201903
  2. DORZOLALMIDE/TIMOLL [Concomitant]

REACTIONS (2)
  - Exposure to toxic agent [None]
  - Rash [None]

NARRATIVE: CASE EVENT DATE: 20190520
